FAERS Safety Report 21816746 (Version 1)
Quarter: 2023Q1

REPORT INFORMATION
  Report Type: Spontaneous
  Country: GB (occurrence: GB)
  Receive Date: 20230104
  Receipt Date: 20230104
  Transmission Date: 20230417
  Serious: Yes (Disabling, Other)
  Sender: FDA-Public Use
  Company Number: GB-MHRA-MED-202212291130246060-TKFGS

PATIENT
  Age: 48 Year
  Sex: Male
  Weight: 90 kg

DRUGS (1)
  1. CIPROFLOXACIN [Suspect]
     Active Substance: CIPROFLOXACIN
     Indication: Kidney infection
     Dosage: 750 MILLIGRAM, BID (750 MG X 2 PER DAY)
     Route: 065
     Dates: start: 20221224, end: 20221228

REACTIONS (3)
  - Eye pain [Recovering/Resolving]
  - Musculoskeletal stiffness [Recovering/Resolving]
  - Pyrexia [Recovering/Resolving]

NARRATIVE: CASE EVENT DATE: 20221225
